FAERS Safety Report 20876110 (Version 1)
Quarter: 2022Q2

REPORT INFORMATION
  Report Type: Spontaneous
  Country: US (occurrence: US)
  Receive Date: 20220526
  Receipt Date: 20220526
  Transmission Date: 20220721
  Serious: No
  Sender: FDA-Public Use
  Company Number: US-NOVEN PHARMACEUTICALS, INC.-2021-NOV-US003703

PATIENT

DRUGS (3)
  1. DAYTRANA [Suspect]
     Active Substance: METHYLPHENIDATE
     Indication: Product used for unknown indication
     Dosage: UNK
     Route: 062
     Dates: start: 2018, end: 2018
  2. CONCERTA [Concomitant]
     Active Substance: METHYLPHENIDATE HYDROCHLORIDE
     Indication: Product used for unknown indication
     Dosage: UNKNOWN
     Route: 065
  3. GUANFACINE [Concomitant]
     Active Substance: GUANFACINE
     Indication: Sleep disorder
     Dosage: UNKNOWN
     Route: 065

REACTIONS (2)
  - Application site hypersensitivity [Recovered/Resolved]
  - Off label use [Recovered/Resolved]

NARRATIVE: CASE EVENT DATE: 20180101
